FAERS Safety Report 6854222-0 (Version None)
Quarter: 2010Q3

REPORT INFORMATION
  Report Type: 
  Country: None (occurrence: None)
  Receive Date: 20100717
  Receipt Date: 20071228
  Transmission Date: 20110219
  Serious: No
  Sender: FDA-Public Use
  Company Number: US-PFIZER INC-2008001421

PATIENT
  Sex: Female
  Weight: 71.8 kg

DRUGS (10)
  1. CHANTIX [Suspect]
     Indication: SMOKING CESSATION THERAPY
     Route: 048
     Dates: start: 20071228
  2. PROVIGIL [Concomitant]
  3. VESICARE [Concomitant]
  4. PREMPRO [Concomitant]
  5. LOVAZA [Concomitant]
  6. VITAMIN D [Concomitant]
  7. VITAMIN B-12 [Concomitant]
  8. CALCIUM CARBONATE/PSYLLIUM HUSK [Concomitant]
  9. MULTI-VITAMINS [Concomitant]
  10. ALL OTHER THERAPEUTIC PRODUCTS [Concomitant]

REACTIONS (2)
  - ABDOMINAL DISCOMFORT [None]
  - DIZZINESS [None]
